FAERS Safety Report 6255899-3 (Version None)
Quarter: 2009Q3

REPORT INFORMATION
  Report Type: 
  Country: None (occurrence: None)
  Receive Date: 20090703
  Receipt Date: 20090629
  Transmission Date: 20100115
  Serious: Yes (Death, Hospitalization, Other)
  Sender: FDA-Public Use
  Company Number: US-ELI_LILLY_AND_COMPANY-US200904004535

PATIENT
  Sex: Female

DRUGS (7)
  1. ALIMTA [Suspect]
     Indication: NON-SMALL CELL LUNG CANCER METASTATIC
     Dosage: 940 MG, UNK
     Dates: end: 20090409
  2. GEMZAR [Suspect]
     Indication: NON-SMALL CELL LUNG CANCER
     Dosage: 1800 MG, UNK
     Dates: end: 20090409
  3. CARBOPLATIN [Concomitant]
     Indication: NON-SMALL CELL LUNG CANCER
     Dosage: 600 MG, UNK
     Dates: end: 20090409
  4. ZOMETA [Concomitant]
     Dosage: 4 MG, UNK
  5. FOLIC ACID [Concomitant]
  6. VITAMIN B-12 [Concomitant]
  7. DEXAMETHASONE [Concomitant]

REACTIONS (6)
  - ADVERSE DRUG REACTION [None]
  - PANCYTOPENIA [None]
  - RENAL FAILURE [None]
  - TOXIC EPIDERMAL NECROLYSIS [None]
  - URINARY TRACT INFECTION [None]
  - VASCULITIS [None]
